FAERS Safety Report 8536920-6 (Version None)
Quarter: 2012Q3

REPORT INFORMATION
  Report Type: 
  Country: None (occurrence: None)
  Receive Date: 20120713
  Receipt Date: 20120702
  Transmission Date: 20120928
  Serious: Yes (Hospitalization)
  Sender: FDA-Public Use
  Company Number: DSU-2012-05318

PATIENT
  Age: 84 Year
  Sex: Female
  Weight: 55.3388 kg

DRUGS (2)
  1. SYNTHYROID (LEVOTHYROXINE SODIUM) (LEVOTHYROXINE SODIUM) [Concomitant]
  2. BENICAR [Suspect]
     Indication: HYPERTENSION
     Dosage: UNKNOWN, PER ORAL
     Route: 048

REACTIONS (4)
  - WEIGHT DECREASED [None]
  - RENAL DISORDER [None]
  - DIARRHOEA [None]
  - MYOCARDIAL INFARCTION [None]
